FAERS Safety Report 17380807 (Version 2)
Quarter: 2021Q1

REPORT INFORMATION
  Report Type: Spontaneous
  Country: US (occurrence: US)
  Receive Date: 20200206
  Receipt Date: 20210201
  Transmission Date: 20210419
  Serious: No
  Sender: FDA-Public Use
  Company Number: US-ABBVIE-19K-163-2665110-00

PATIENT
  Sex: Female

DRUGS (1)
  1. HUMIRA [Suspect]
     Active Substance: ADALIMUMAB
     Indication: PSORIASIS
     Route: 058

REACTIONS (15)
  - Skin disorder [Unknown]
  - Lip haemorrhage [Unknown]
  - Lip pain [Unknown]
  - Axillary pain [Unknown]
  - Hypersensitivity [Recovering/Resolving]
  - Dry skin [Unknown]
  - Pruritus [Unknown]
  - Therapeutic product effect incomplete [Unknown]
  - Scar [Unknown]
  - Skin exfoliation [Not Recovered/Not Resolved]
  - Chapped lips [Unknown]
  - Lip swelling [Unknown]
  - Psoriasis [Unknown]
  - Pain in extremity [Unknown]
  - Burning sensation [Unknown]
